FAERS Safety Report 14047150 (Version 1)
Quarter: 2017Q4

REPORT INFORMATION
  Report Type: Spontaneous
  Country: FR (occurrence: FR)
  Receive Date: 20171005
  Receipt Date: 20171005
  Transmission Date: 20180321
  Serious: Yes (Other)
  Sender: FDA-Public Use
  Company Number: FR-B. BRAUN MEDICAL INC.-2028847

PATIENT
  Age: 35 Year
  Sex: Male

DRUGS (11)
  1. METHYLPREDNISOLONE. [Concomitant]
     Active Substance: METHYLPREDNISOLONE
     Route: 042
     Dates: start: 20160805
  2. VENOFER [Concomitant]
     Active Substance: IRON SUCROSE
     Dates: start: 20160805
  3. CEFTRIAXONE. [Concomitant]
     Active Substance: CEFTRIAXONE
     Dates: start: 20160803
  4. DIFFU-K (POTASSIUM) 600 MG [Concomitant]
     Dates: start: 20160805, end: 20160810
  5. METRONIDAZOLE. [Suspect]
     Active Substance: METRONIDAZOLE
     Dates: start: 20160803
  6. SPASFON (PHLOROGLUCINOL) [Concomitant]
     Active Substance: PHLOROGLUCINOL
     Dates: start: 20160803
  7. DOLIPRANE [Concomitant]
     Active Substance: ACETAMINOPHEN
     Dates: start: 20160806
  8. NORMACOL (DIHYDROGENPHOSPHATE) [Concomitant]
     Dates: start: 20160804
  9. ACUPAN [Concomitant]
     Active Substance: NEFOPAM HYDROCHLORIDE
     Dates: start: 20160805, end: 20160810
  10. VITAMIN K1 [Concomitant]
     Active Substance: PHYTONADIONE
  11. OFLOXACIN. [Concomitant]
     Active Substance: OFLOXACIN
     Dates: start: 20160805

REACTIONS (1)
  - Thrombocytopenia [Recovered/Resolved]

NARRATIVE: CASE EVENT DATE: 20160803
